FAERS Safety Report 5498300-X (Version None)
Quarter: 2007Q4

REPORT INFORMATION
  Report Type: 
  Country: None (occurrence: None)
  Receive Date: 20071025
  Receipt Date: 20070426
  Transmission Date: 20080405
  Serious: No
  Sender: FDA-Public Use
  Company Number: A0648972A

PATIENT
  Sex: Female

DRUGS (1)
  1. ADVAIR DISKUS 100/50 [Suspect]
     Indication: DRUG USE FOR UNKNOWN INDICATION
     Route: 055

REACTIONS (6)
  - COUGH [None]
  - HAEMOPTYSIS [None]
  - PARANASAL SINUS HYPERSECRETION [None]
  - PHARYNGEAL INFLAMMATION [None]
  - PHARYNGITIS [None]
  - SPUTUM DISCOLOURED [None]
